FAERS Safety Report 17881533 (Version 1)
Quarter: 2020Q2

REPORT INFORMATION
  Report Type: Report from Study
  Country: US (occurrence: US)
  Receive Date: 20200610
  Receipt Date: 20200610
  Transmission Date: 20200714
  Serious: Yes (Hospitalization, Other)
  Sender: FDA-Public Use
  Company Number: US-ACTELION-A-US2017-161871

PATIENT
  Age: 84 Year
  Sex: Female
  Weight: 68.03 kg

DRUGS (3)
  1. OPSUMIT [Suspect]
     Active Substance: MACITENTAN
     Indication: PULMONARY ARTERIAL HYPERTENSION
     Dosage: 10 MG, QD
     Route: 048
     Dates: start: 20140723
  2. WARFARIN [Concomitant]
     Active Substance: WARFARIN
  3. AMLODIPINE [Concomitant]
     Active Substance: AMLODIPINE BESYLATE

REACTIONS (16)
  - Hip arthroplasty [Unknown]
  - Anaemia [Unknown]
  - Transfusion [Unknown]
  - Miliaria [Unknown]
  - Cardiac failure congestive [Unknown]
  - Renal disorder [Unknown]
  - Rash pruritic [Unknown]
  - Hypoacusis [Unknown]
  - Vitamin D decreased [Unknown]
  - Blood pressure abnormal [Unknown]
  - Rash [Unknown]
  - Arthritis [Unknown]
  - Arthralgia [Unknown]
  - Malaise [Unknown]
  - Pruritus [Unknown]
  - Dizziness [Not Recovered/Not Resolved]

NARRATIVE: CASE EVENT DATE: 201907
